FAERS Safety Report 9018369 (Version 1)
Quarter: 2013Q1

REPORT INFORMATION
  Report Type: Spontaneous
  Country: US (occurrence: None)
  Receive Date: 20130111
  Receipt Date: 20130111
  Transmission Date: 20140127
  Serious: Yes (Other)
  Sender: FDA-Public Use
  Company Number: None

PATIENT
  Age: 50 Year
  Sex: Male
  Weight: 102.06 kg

DRUGS (1)
  1. SUBOXONE, 8 MG, BECKIT RICKETT [Suspect]
     Indication: DRUG DEPENDENCE
     Dosage: 4 MG. DAILY SL
     Route: 060
     Dates: start: 20121121, end: 20130102

REACTIONS (1)
  - Tinnitus [None]
